FAERS Safety Report 9233928 (Version 1)
Quarter: 2013Q2

REPORT INFORMATION
  Report Type: Spontaneous
  Country: US (occurrence: US)
  Receive Date: 20130416
  Receipt Date: 20130416
  Transmission Date: 20140414
  Serious: No
  Sender: FDA-Public Use
  Company Number: US-PFIZER INC-2013117907

PATIENT
  Age: 4 Year
  Sex: Female

DRUGS (1)
  1. QUILLIVANT XR [Suspect]
     Dosage: UNK
     Dates: start: 20130412

REACTIONS (3)
  - Accidental exposure to product [Not Recovered/Not Resolved]
  - Dyskinesia [Not Recovered/Not Resolved]
  - Insomnia [Not Recovered/Not Resolved]
